FAERS Safety Report 8902890 (Version 4)
Quarter: 2012Q4

REPORT INFORMATION
  Report Type: 
  Country: AT (occurrence: AT)
  Receive Date: 20121112
  Receipt Date: 20121219
  Transmission Date: 20130627
  Serious: Yes (Hospitalization)
  Sender: FDA-Public Use
  Company Number: AT-BIOGENIDEC-2012BI050430

PATIENT
  Age: 35 Year
  Sex: Male

DRUGS (2)
  1. AVONEX [Suspect]
     Indication: PRODUCT USED FOR UNKNOWN INDICATION
     Route: 030
     Dates: start: 20121016, end: 2012
  2. DRONABINOL [Concomitant]

REACTIONS (2)
  - Portal vein thrombosis [Not Recovered/Not Resolved]
  - Gastritis [Unknown]
